FAERS Safety Report 5590198-4 (Version None)
Quarter: 2008Q1

REPORT INFORMATION
  Report Type: 
  Country: None (occurrence: None)
  Receive Date: 20080114
  Receipt Date: 20080109
  Transmission Date: 20080703
  Serious: Yes (Other)
  Sender: FDA-Public Use
  Company Number: BR-ASTRAZENECA-2008UW00720

PATIENT
  Age: 37 Year
  Sex: Female
  Weight: 65 kg

DRUGS (8)
  1. ZOLADEX [Suspect]
     Indication: UTERINE LEIOMYOMA
     Route: 058
     Dates: start: 20071211
  2. ZOLADEX [Suspect]
     Indication: VAGINAL HAEMORRHAGE
     Route: 058
     Dates: start: 20071211
  3. DIPIRONA [Suspect]
  4. SUMAX [Concomitant]
  5. ORMIGREIN [Concomitant]
  6. TYLENOL DC [Concomitant]
  7. ACETAMINOPHEN W/ CODEINE [Concomitant]
  8. METHERGINE [Concomitant]
     Indication: VAGINAL HAEMORRHAGE

REACTIONS (5)
  - CARDIAC FAILURE [None]
  - MIGRAINE [None]
  - PYREXIA [None]
  - TENSION HEADACHE [None]
  - VOMITING [None]
